FAERS Safety Report 9442278 (Version 1)
Quarter: 2013Q3

REPORT INFORMATION
  Report Type: Spontaneous
  Country: US (occurrence: US)
  Receive Date: 20130806
  Receipt Date: 20130806
  Transmission Date: 20140515
  Serious: No
  Sender: FDA-Public Use
  Company Number: US-GLAXOSMITHKLINE-A0982201A

PATIENT
  Age: 75 Year
  Sex: Female

DRUGS (6)
  1. ADVAIR [Suspect]
     Indication: ASTHMA
     Route: 065
     Dates: start: 201111, end: 201205
  2. ADVAIR [Suspect]
     Indication: ASTHMA
     Dosage: 1PUFF TWICE PER DAY
     Route: 065
     Dates: start: 201205
  3. CRESTOR [Concomitant]
  4. LEVOXYL [Concomitant]
  5. EXCEDRIN [Concomitant]
  6. VALIUM [Concomitant]

REACTIONS (2)
  - Dysphonia [Not Recovered/Not Resolved]
  - Throat irritation [Unknown]
